FAERS Safety Report 17758297 (Version 2)
Quarter: 2020Q2

REPORT INFORMATION
  Report Type: Spontaneous
  Country: TR (occurrence: TR)
  Receive Date: 20200507
  Receipt Date: 20200615
  Transmission Date: 20200714
  Serious: Yes (Other)
  Sender: FDA-Public Use
  Company Number: NVSC2020TR123816

PATIENT
  Age: 44 Year
  Sex: Female

DRUGS (1)
  1. SANDOSTATIN LAR DEPOT [Suspect]
     Active Substance: OCTREOTIDE ACETATE
     Indication: HORMONE LEVEL ABNORMAL
     Dosage: 30 MG, QMO
     Route: 030

REACTIONS (3)
  - Brain neoplasm [Unknown]
  - Product use in unapproved indication [Unknown]
  - Amenorrhoea [Not Recovered/Not Resolved]
